FAERS Safety Report 12753132 (Version 2)
Quarter: 2016Q3

REPORT INFORMATION
  Report Type: Spontaneous
  Country: DE (occurrence: DE)
  Receive Date: 20160916
  Receipt Date: 20160919
  Transmission Date: 20161109
  Serious: Yes (Death, Other)
  Sender: FDA-Public Use
  Company Number: DE-BRISTOL-MYERS SQUIBB COMPANY-BMS-2016-074055

PATIENT
  Sex: Female

DRUGS (5)
  1. RIFAMPICIN [Suspect]
     Active Substance: RIFAMPIN
     Indication: PULMONARY TUBERCULOSIS
     Dosage: 600 MG, UNK
     Route: 048
     Dates: start: 201511, end: 201608
  2. METAMIZOL                          /06276702/ [Concomitant]
     Active Substance: METAMIZOLE
     Indication: VENOUS THROMBOSIS
     Dosage: 500 MG, UNK
     Route: 048
  3. NIVOLUMAB [Suspect]
     Active Substance: NIVOLUMAB
     Indication: LARYNGEAL CANCER
     Dosage: UNK, Q2WK
     Route: 065
     Dates: start: 20160523, end: 201608
  4. ISONIAZIDE [Suspect]
     Active Substance: ISONIAZID
     Indication: PULMONARY TUBERCULOSIS
     Dosage: 300 MG, UNK
     Route: 065
     Dates: start: 201511, end: 201608
  5. XARELTO [Concomitant]
     Active Substance: RIVAROXABAN
     Indication: PULMONARY TUBERCULOSIS
     Dosage: 20 MG, UNK
     Route: 048
     Dates: end: 201608

REACTIONS (3)
  - Product use issue [Unknown]
  - Multiple organ dysfunction syndrome [Fatal]
  - Acute hepatic failure [Fatal]
